FAERS Safety Report 18381552 (Version 1)
Quarter: 2020Q4

REPORT INFORMATION
  Report Type: Spontaneous
  Country: HU (occurrence: HU)
  Receive Date: 20201014
  Receipt Date: 20201014
  Transmission Date: 20210114
  Serious: Yes (Other)
  Sender: FDA-Public Use
  Company Number: HU-BAYER-2020-187375

PATIENT
  Age: 51 Year
  Sex: Male

DRUGS (8)
  1. STIVARGA [Suspect]
     Active Substance: REGORAFENIB
     Indication: HEPATOCELLULAR CARCINOMA
     Dosage: 3-4 TABS/DAY/3 WEEKS THEN 1 WEEK BREAK
     Dates: start: 2018
  2. NEXAVAR [Suspect]
     Active Substance: SORAFENIB
     Indication: HEPATOCELLULAR CARCINOMA
     Dosage: 2-3 TABLETS/DAY
     Dates: start: 202004
  3. TACE [CHLOROTRIANISENE] [Concomitant]
     Dosage: UNK UNK, ONCE
  4. CALCIUM [Concomitant]
     Active Substance: CALCIUM
     Indication: ARTHRALGIA
  5. VITAMIN D [VITAMIN D NOS] [Concomitant]
     Active Substance: VITAMIN D NOS
  6. NEXAVAR [Suspect]
     Active Substance: SORAFENIB
     Indication: HEPATOCELLULAR CARCINOMA
     Dosage: 2 X 400 MG
     Dates: start: 20150213
  7. STIVARGA [Suspect]
     Active Substance: REGORAFENIB
     Indication: HEPATOCELLULAR CARCINOMA
     Dosage: 4 TABS/DAY/3 WEEKS THEN 1 WEEK BREAK
     Dates: start: 20171110
  8. DENOSUMAB [Concomitant]
     Active Substance: DENOSUMAB
     Indication: ARTHRALGIA

REACTIONS (11)
  - Spinal compression fracture [None]
  - Hypertension [None]
  - Pain [None]
  - Abdominal distension [None]
  - Palmar-plantar erythrodysaesthesia syndrome [None]
  - Asthenia [None]
  - Diarrhoea [None]
  - Hepatocellular carcinoma [None]
  - Off label use [None]
  - Diarrhoea [None]
  - Cutaneous symptom [None]

NARRATIVE: CASE EVENT DATE: 20150505
